FAERS Safety Report 8321803-7 (Version None)
Quarter: 2012Q2

REPORT INFORMATION
  Report Type: 
  Country: None (occurrence: None)
  Receive Date: 20120430
  Receipt Date: 20120423
  Transmission Date: 20120825
  Serious: Yes (Life-Threatening, Hospitalization)
  Sender: FDA-Public Use
  Company Number: DE-ABBOTT-12P-062-0928535-00

PATIENT
  Age: 42 Year
  Sex: Male
  Weight: 54 kg

DRUGS (2)
  1. RALTEGRAVIR [Concomitant]
     Indication: HIV INFECTION
     Dates: start: 20110812
  2. KALETRA [Suspect]
     Indication: HIV INFECTION
     Dosage: 200/50MG
     Dates: start: 20110812

REACTIONS (4)
  - RUPTURED CEREBRAL ANEURYSM [None]
  - SUBARACHNOID HAEMORRHAGE [None]
  - HEMIPARESIS [None]
  - CEREBROVASCULAR SPASM [None]
